FAERS Safety Report 10638278 (Version 1)
Quarter: 2014Q4

REPORT INFORMATION
  Report Type: Spontaneous
  Country: US (occurrence: None)
  Receive Date: 20141204
  Receipt Date: 20141204
  Transmission Date: 20150529
  Serious: Yes (Life-Threatening)
  Sender: FDA-Public Use
  Company Number: FK201405724

PATIENT
  Age: 45 Year
  Sex: Female

DRUGS (5)
  1. PROPOFOL (PROPOFOL) [Concomitant]
     Active Substance: PROPOFOL
  2. FENTANYL (FENTANYL) [Concomitant]
     Active Substance: FENTANYL
  3. METHYLPREDNISOLONE (MANUFACTURER UNKNOWN) (METHYLPREDNISOLONE SODIUM SUCCINATE) (METHYLPREDNISOLONE SODIUM SUCCINATE) [Suspect]
     Active Substance: METHYLPREDNISOLONE
     Indication: PRODUCT USED FOR UNKNOWN INDICATION
     Dosage: NOT OTHERWISE SPECIFIED
     Route: 042
  4. LIDOCAINE (LIDOCAINE) [Concomitant]
     Active Substance: LIDOCAINE
  5. ROCURONIUM BROMIDE (ROCURONIUM BROMIDE) [Concomitant]

REACTIONS (2)
  - Cardiac arrest [None]
  - Anaphylactic reaction [None]
